FAERS Safety Report 11031664 (Version 1)
Quarter: 2015Q2

REPORT INFORMATION
  Report Type: Spontaneous
  Country: CA (occurrence: None)
  Receive Date: 20150413
  Receipt Date: 20150413
  Transmission Date: 20150821
  Serious: Yes (Other)
  Sender: FDA-Public Use
  Company Number: 1582111

PATIENT
  Age: 19 Year
  Sex: Female

DRUGS (3)
  1. FLUVOXAMINE [Suspect]
     Active Substance: FLUVOXAMINE
     Indication: ANXIETY
     Dosage: X 7 MONTHS
  2. FLUVOXAMINE [Suspect]
     Active Substance: FLUVOXAMINE
     Indication: DEPRESSION
     Dosage: X 7 MONTHS
  3. QUETIAPINE [Concomitant]
     Active Substance: QUETIAPINE

REACTIONS (1)
  - Cataract [None]
